FAERS Safety Report 9266768 (Version 1)
Quarter: 2013Q2

REPORT INFORMATION
  Report Type: Spontaneous
  Country: RO (occurrence: RO)
  Receive Date: 20130502
  Receipt Date: 20130502
  Transmission Date: 20140414
  Serious: Yes (Other)
  Sender: FDA-Public Use
  Company Number: RO-PFIZER INC-2013133695

PATIENT
  Age: 80 Year
  Sex: Male

DRUGS (4)
  1. CORDARONE [Suspect]
     Indication: ARRHYTHMIA
     Dosage: 200 MG EACH EVENING
     Route: 048
     Dates: start: 20130414
  2. CONCOR [Concomitant]
     Dosage: UNK
  3. NORVASC [Concomitant]
     Dosage: UNK
  4. TERTENSIF [Concomitant]
     Dosage: UNK

REACTIONS (4)
  - Asphyxia [Unknown]
  - Headache [Unknown]
  - Tremor [Unknown]
  - Vision blurred [Unknown]
